FAERS Safety Report 10676336 (Version 7)
Quarter: 2016Q3

REPORT INFORMATION
  Report Type: Report from Study
  Country: US (occurrence: US)
  Receive Date: 20141226
  Receipt Date: 20160919
  Transmission Date: 20161109
  Serious: Yes (Hospitalization, Other)
  Sender: FDA-Public Use
  Company Number: US-ALEXION PHARMACEUTICALS INC-A201404820

PATIENT
  Sex: Male

DRUGS (2)
  1. SOLIRIS [Suspect]
     Active Substance: ECULIZUMAB
     Indication: PAROXYSMAL NOCTURNAL HAEMOGLOBINURIA
     Dosage: 600 MG, UNK
     Route: 042
  2. SOLIRIS [Suspect]
     Active Substance: ECULIZUMAB
     Dosage: 900 MG, UNK
     Route: 042
     Dates: start: 20141209

REACTIONS (15)
  - Dizziness [Unknown]
  - Appendicitis [Unknown]
  - Cyst [Unknown]
  - Throat tightness [Unknown]
  - Lethargy [Unknown]
  - Fatigue [Not Recovered/Not Resolved]
  - Red blood cell count decreased [Unknown]
  - Asthenia [Unknown]
  - Drug hypersensitivity [Unknown]
  - Neutrophil count decreased [Unknown]
  - Rash [Unknown]
  - Pyrexia [Unknown]
  - Chest pain [Unknown]
  - White blood cell count decreased [Recovering/Resolving]
  - Condition aggravated [Unknown]
